FAERS Safety Report 6907490-0 (Version None)
Quarter: 2010Q3

REPORT INFORMATION
  Report Type: 
  Country: None (occurrence: None)
  Receive Date: 20100805
  Receipt Date: 20100726
  Transmission Date: 20110219
  Serious: No
  Sender: FDA-Public Use
  Company Number: US-BIOGENIDEC-2010BI022039

PATIENT
  Sex: Female

DRUGS (2)
  1. TYSABRI [Suspect]
     Indication: MULTIPLE SCLEROSIS
     Route: 042
     Dates: start: 20070501, end: 20070901
  2. TYSABRI [Suspect]
     Route: 042
     Dates: start: 20080301

REACTIONS (7)
  - DYSPNOEA [None]
  - FATIGUE [None]
  - HEADACHE [None]
  - OESOPHAGEAL SPASM [None]
  - STRESS [None]
  - VEIN DISORDER [None]
  - VISUAL IMPAIRMENT [None]
